FAERS Safety Report 7726560-0 (Version None)
Quarter: 2011Q3

REPORT INFORMATION
  Report Type: 
  Country: None (occurrence: None)
  Receive Date: 20110902
  Receipt Date: 20110824
  Transmission Date: 20111222
  Serious: Yes (Other)
  Sender: FDA-Public Use
  Company Number: PHHY2011US76345

PATIENT
  Age: 38 Year
  Sex: Male

DRUGS (4)
  1. OXCARBAZEPINE [Suspect]
     Dosage: 750 MG, BID
  2. OXCARBAZEPINE [Suspect]
     Indication: CONVULSION
     Dosage: 150 MG, BID
  3. OXCARBAZEPINE [Suspect]
     Dosage: 600 MG, BID
  4. OXCARBAZEPINE [Suspect]
     Dosage: 450 MG, BID

REACTIONS (3)
  - LOSS OF CONSCIOUSNESS [None]
  - FALL [None]
  - CONVULSION [None]
